FAERS Safety Report 5642028-X (Version None)
Quarter: 2008Q1

REPORT INFORMATION
  Report Type: 
  Country: None (occurrence: None)
  Receive Date: 20080227
  Receipt Date: 20080215
  Transmission Date: 20080703
  Serious: Yes (Other)
  Sender: FDA-Public Use
  Company Number: GB-PFIZER INC-2008015358

PATIENT
  Age: 36 Year
  Sex: Male

DRUGS (2)
  1. EPANUTIN [Suspect]
     Route: 048
  2. DIAZEPAM [Concomitant]
     Route: 054

REACTIONS (2)
  - ANTICONVULSANT DRUG LEVEL DECREASED [None]
  - EPILEPSY [None]
